FAERS Safety Report 9392646 (Version 1)
Quarter: 2013Q3

REPORT INFORMATION
  Report Type: Spontaneous
  Country: FR (occurrence: FR)
  Receive Date: 20130710
  Receipt Date: 20130710
  Transmission Date: 20140515
  Serious: Yes (Hospitalization)
  Sender: FDA-Public Use
  Company Number: FR-UCBSA-091198

PATIENT
  Age: 11 Year
  Sex: Female

DRUGS (1)
  1. QUASYM LP [Suspect]
     Indication: ATTENTION DEFICIT/HYPERACTIVITY DISORDER
     Route: 048
     Dates: start: 20130420, end: 20130423

REACTIONS (1)
  - Psychiatric decompensation [Recovered/Resolved]
